FAERS Safety Report 10203990 (Version 1)
Quarter: 2014Q2

REPORT INFORMATION
  Report Type: Spontaneous
  Country: PR (occurrence: None)
  Receive Date: 20140523
  Receipt Date: 20140523
  Transmission Date: 20141212
  Serious: Yes (Other)
  Sender: FDA-Public Use
  Company Number: FK201401819

PATIENT
  Age: 24 Year
  Sex: Female

DRUGS (9)
  1. METHYLPREDNISOLONE [Suspect]
     Indication: SKIN ULCER
     Dosage: HIGH DOSE
     Dates: start: 200802
  2. PREDNISONE [Suspect]
     Indication: SKIN ULCER
     Dosage: HIGH DOSE
     Dates: start: 200802
  3. PIPERACILLIN/TAZOBACTAM (PIP/TAZO) (PIPERACILLIN SODIUM, TAZOBACTAM SODIUM) [Concomitant]
  4. BROAD SPECTRUM ANTIBIOTICS [Concomitant]
  5. CYCLOPHOSPHAMIDE [Concomitant]
  6. MYCOPHENOLATE MOFETIL [Concomitant]
  7. AZATHIOPRINE [Concomitant]
  8. VANCOMYCIN [Concomitant]
  9. WARFARIN [Concomitant]

REACTIONS (8)
  - Osteonecrosis [None]
  - Gastrointestinal disorder [None]
  - Drug intolerance [None]
  - Skin ulcer [None]
  - Condition aggravated [None]
  - Culture wound positive [None]
  - Klebsiella test positive [None]
  - Enterococcus test positive [None]
